FAERS Safety Report 10903622 (Version 1)
Quarter: 2015Q1

REPORT INFORMATION
  Report Type: Spontaneous
  Country: US (occurrence: US)
  Receive Date: 20150311
  Receipt Date: 20150311
  Transmission Date: 20150721
  Serious: No
  Sender: FDA-Public Use
  Company Number: US-BIOGENIDEC-2015BI028342

PATIENT
  Age: 54 Year
  Sex: Male
  Weight: 96 kg

DRUGS (14)
  1. BETASERON [Concomitant]
     Active Substance: INTERFERON BETA-1B
  2. LOSARTAN [Concomitant]
     Active Substance: LOSARTAN
  3. AMPYRA [Concomitant]
     Active Substance: DALFAMPRIDINE
     Indication: GAIT DISTURBANCE
     Route: 048
     Dates: start: 201402
  4. LANSOPRAZOLE. [Concomitant]
     Active Substance: LANSOPRAZOLE
  5. RITALIN [Concomitant]
     Active Substance: METHYLPHENIDATE HYDROCHLORIDE
     Indication: PRODUCT USED FOR UNKNOWN INDICATION
     Dates: start: 201403
  6. SIMVASTATIN. [Concomitant]
     Active Substance: SIMVASTATIN
     Indication: PRODUCT USED FOR UNKNOWN INDICATION
  7. CITALOPRAM [Concomitant]
     Active Substance: CITALOPRAM HYDROBROMIDE
  8. EXFORGE [Concomitant]
     Active Substance: AMLODIPINE BESYLATE\VALSARTAN
  9. TECFIDERA [Suspect]
     Active Substance: DIMETHYL FUMARATE
     Indication: MULTIPLE SCLEROSIS
     Route: 048
  10. AMLODIPINE [Concomitant]
     Active Substance: AMLODIPINE BESYLATE
  11. VITAMIN D [Concomitant]
     Active Substance: CHOLECALCIFEROL
  12. CHOLESTEROL [Concomitant]
     Active Substance: CHOLESTEROL
  13. HYDROCHLOROTHIAZIDE. [Concomitant]
     Active Substance: HYDROCHLOROTHIAZIDE
  14. DOXAZOSIN [Concomitant]
     Active Substance: DOXAZOSIN\DOXAZOSIN MESYLATE

REACTIONS (21)
  - Depressed mood [Unknown]
  - Tremor [Not Recovered/Not Resolved]
  - Flushing [Unknown]
  - Nausea [Recovered/Resolved]
  - Peroneal nerve palsy [Not Recovered/Not Resolved]
  - Hypersomnia [Recovered/Resolved]
  - Muscle spasticity [Not Recovered/Not Resolved]
  - Musculoskeletal stiffness [Not Recovered/Not Resolved]
  - Fatigue [Unknown]
  - Weight decreased [Unknown]
  - Migraine [Recovered/Resolved]
  - Asthenia [Not Recovered/Not Resolved]
  - Drug ineffective [Unknown]
  - Insomnia [Not Recovered/Not Resolved]
  - Blood pressure decreased [Unknown]
  - Muscular weakness [Not Recovered/Not Resolved]
  - Multiple sclerosis [Unknown]
  - Depression [Unknown]
  - Stress [Unknown]
  - Constipation [Not Recovered/Not Resolved]
  - Therapy cessation [Unknown]

NARRATIVE: CASE EVENT DATE: 2013
